FAERS Safety Report 5086512-9 (Version None)
Quarter: 2006Q3

REPORT INFORMATION
  Report Type: 
  Country: None (occurrence: None)
  Receive Date: 20060821
  Receipt Date: 20060821
  Transmission Date: 20061208
  Serious: No
  Sender: FDA-Public Use
  Company Number: None

PATIENT
  Age: 64 Year
  Sex: Male
  Weight: 92.5 kg

DRUGS (10)
  1. OMNISCAN [Suspect]
     Indication: HEPATIC FAILURE
     Dosage: 40 CC  ONE TIME INJECTION   IV
     Route: 042
     Dates: start: 20050922, end: 20050922
  2. OMNISCAN [Suspect]
     Indication: LIVER TRANSPLANT
     Dosage: 40 CC  ONE TIME INJECTION   IV
     Route: 042
     Dates: start: 20050922, end: 20050922
  3. OMNISCAN [Suspect]
     Indication: PREOPERATIVE CARE
     Dosage: 40 CC  ONE TIME INJECTION   IV
     Route: 042
     Dates: start: 20050922, end: 20050922
  4. MYCELEX [Concomitant]
  5. VALGANCYCLOVIR [Concomitant]
  6. SEPTRA [Concomitant]
  7. RISPERDAL [Concomitant]
  8. PREVACID [Concomitant]
  9. PREDNISONE TAB [Concomitant]
  10. CYCLOSPORINE [Concomitant]

REACTIONS (5)
  - INDURATION [None]
  - MUSCULAR WEAKNESS [None]
  - OEDEMA PERIPHERAL [None]
  - RASH ERYTHEMATOUS [None]
  - SKIN LESION [None]
